FAERS Safety Report 7943912-4 (Version None)
Quarter: 2011Q4

REPORT INFORMATION
  Report Type: 
  Country: None (occurrence: None)
  Receive Date: 20111128
  Receipt Date: 20111122
  Transmission Date: 20120403
  Serious: Yes (Other)
  Sender: FDA-Public Use
  Company Number: US-ROCHE-797120

PATIENT
  Sex: Male
  Weight: 50.848 kg

DRUGS (11)
  1. ACCUTANE [Suspect]
     Indication: ACNE
     Route: 048
     Dates: start: 20011212, end: 20020112
  2. ACCUTANE [Suspect]
     Route: 048
     Dates: start: 20031017, end: 20040220
  3. PENTASA [Concomitant]
  4. ACCUTANE [Suspect]
     Route: 048
     Dates: start: 20030402, end: 20030602
  5. AMNESTEEM [Suspect]
     Indication: ACNE
     Route: 048
     Dates: start: 20051017, end: 20061201
  6. DORYX (UNITED STATES) [Concomitant]
  7. TETRACYCLINE [Concomitant]
  8. CLARAVIS [Suspect]
     Indication: ACNE
     Route: 065
  9. ALINAM [Concomitant]
  10. ACCUTANE [Suspect]
     Route: 048
     Dates: start: 20020927, end: 20021027
  11. ACCUTANE [Suspect]
     Route: 048
     Dates: start: 20021202, end: 20030220

REACTIONS (5)
  - CROHN'S DISEASE [None]
  - EMOTIONAL DISTRESS [None]
  - STRESS [None]
  - INJURY [None]
  - INFLAMMATORY BOWEL DISEASE [None]
